FAERS Safety Report 6504439-X (Version None)
Quarter: 2009Q4

REPORT INFORMATION
  Report Type: 
  Country: None (occurrence: None)
  Receive Date: 20091215
  Receipt Date: 20091204
  Transmission Date: 20100525
  Serious: Yes (Hospitalization, Other)
  Sender: FDA-Public Use
  Company Number: 2009AC000492

PATIENT
  Age: 59 Year
  Sex: Male

DRUGS (14)
  1. DIGOXIN [Suspect]
     Dosage: 0.25 MG;QD;PO
     Route: 048
     Dates: start: 19950501
  2. ATENOLOL [Concomitant]
  3. COLACE [Concomitant]
  4. ASPIRIN [Concomitant]
  5. METFORMIN [Concomitant]
  6. GLYBURIDE [Concomitant]
  7. LIPITOR [Concomitant]
  8. LISINOPRIL [Concomitant]
  9. NEXIUM [Concomitant]
  10. AMBIEN [Concomitant]
  11. PLAVIX [Concomitant]
  12. LEXAPRO [Concomitant]
  13. TRICOR [Concomitant]
  14. XANAX [Concomitant]

REACTIONS (8)
  - ANXIETY [None]
  - ASTHENIA [None]
  - BLOOD PRESSURE SYSTOLIC INCREASED [None]
  - EXERCISE ELECTROCARDIOGRAM ABNORMAL [None]
  - HYPERSOMNIA [None]
  - HYPOTENSION [None]
  - LETHARGY [None]
  - VENTRICULAR TACHYCARDIA [None]
